FAERS Safety Report 8072934-0 (Version None)
Quarter: 2012Q1

REPORT INFORMATION
  Report Type: 
  Country: None (occurrence: None)
  Receive Date: 20120120
  Receipt Date: 20120105
  Transmission Date: 20120608
  Serious: Yes (Life-Threatening, Hospitalization)
  Sender: FDA-Public Use
  Company Number: US-2012-10026

PATIENT
  Age: 41 Year
  Sex: Male

DRUGS (2)
  1. BUSULFAN [Suspect]
     Indication: ACUTE MYELOID LEUKAEMIA
     Dosage: 32 MG/KG, QD, INTRAVENOUS
     Route: 042
     Dates: start: 20110816
  2. CYCLOPHOSPHAMIDE [Concomitant]

REACTIONS (23)
  - SOMNOLENCE [None]
  - LEFT VENTRICULAR DYSFUNCTION [None]
  - PYREXIA [None]
  - RENAL FAILURE [None]
  - CONFUSIONAL STATE [None]
  - OVERDOSE [None]
  - PSEUDOMONAS INFECTION [None]
  - ACUTE RESPIRATORY DISTRESS SYNDROME [None]
  - REFRACTORINESS TO PLATELET TRANSFUSION [None]
  - REFUSAL OF TREATMENT BY PATIENT [None]
  - BONE MARROW FAILURE [None]
  - MUCOSAL INFLAMMATION [None]
  - STAPHYLOCOCCAL INFECTION [None]
  - MULTI-ORGAN DISORDER [None]
  - MIOSIS [None]
  - NEUROLOGICAL DECOMPENSATION [None]
  - HEPATIC FUNCTION ABNORMAL [None]
  - SEPTIC SHOCK [None]
  - CHOLANGITIS [None]
  - MULTIPLE-DRUG RESISTANCE [None]
  - CHOLELITHIASIS [None]
  - CHOLESTASIS [None]
  - ENGRAFTMENT SYNDROME [None]
